FAERS Safety Report 20810390 (Version 1)
Quarter: 2022Q2

REPORT INFORMATION
  Report Type: Spontaneous
  Country: US (occurrence: US)
  Receive Date: 20220510
  Receipt Date: 20220510
  Transmission Date: 20220721
  Serious: No
  Sender: FDA-Public Use
  Company Number: US-OYSTER POINT PHARMA, INC.-2022OYS00307

PATIENT
  Age: 65 Year
  Sex: Female
  Weight: 80.286 kg

DRUGS (4)
  1. TYRVAYA [Suspect]
     Active Substance: VARENICLINE TARTRATE
     Indication: Dry eye
     Dosage: 1 SPRAY EACH NOSTRIL, 2X/DAY MORNING AND NIGHT
     Route: 045
     Dates: start: 20220318
  2. FISH OIL [Concomitant]
     Active Substance: FISH OIL
     Dosage: 7200 MG, 1X/DAY
  3. CEQUA [Concomitant]
     Active Substance: CYCLOSPORINE
     Dosage: 1 DROP, 2X/DAY (AM AND NIGHT)
  4. VITAMIN D [Concomitant]
     Active Substance: VITAMIN D NOS
     Dosage: UNK, 1X/DAY

REACTIONS (7)
  - Rheumatoid factor increased [Not Recovered/Not Resolved]
  - Antinuclear antibody positive [Not Recovered/Not Resolved]
  - Rhinorrhoea [Not Recovered/Not Resolved]
  - Product after taste [Not Recovered/Not Resolved]
  - Wrong technique in product usage process [Unknown]
  - Sneezing [Unknown]
  - Throat irritation [Not Recovered/Not Resolved]

NARRATIVE: CASE EVENT DATE: 20220301
